FAERS Safety Report 8473195-0 (Version None)
Quarter: 2012Q2

REPORT INFORMATION
  Report Type: 
  Country: None (occurrence: None)
  Receive Date: 20120627
  Receipt Date: 20120615
  Transmission Date: 20120825
  Serious: Yes (Death)
  Sender: FDA-Public Use
  Company Number: US-PFIZER INC-2012085604

PATIENT
  Sex: Female
  Weight: 68.481 kg

DRUGS (6)
  1. VARENICLINE TARTRATE [Suspect]
     Indication: SMOKING CESSATION THERAPY
     Dosage: 12 WEEKS
     Route: 048
     Dates: start: 20110601, end: 20110822
  2. VITAMIN D [Concomitant]
     Indication: ROUTINE HEALTH MAINTENANCE
     Dosage: UNK; ONCE DAILY
     Route: 048
     Dates: start: 19900101
  3. FISH OIL [Concomitant]
     Indication: ROUTINE HEALTH MAINTENANCE
     Dosage: UNK; ONCE DAILY
     Route: 048
     Dates: start: 19900101
  4. ASPIRIN [Concomitant]
     Indication: ROUTINE HEALTH MAINTENANCE
     Dosage: UNK; ONCE DAILY
     Route: 048
     Dates: start: 20060101
  5. ASCORBIC ACID [Concomitant]
     Indication: ROUTINE HEALTH MAINTENANCE
     Dosage: UNK; ONCE DAILY
     Route: 048
     Dates: start: 19900101
  6. CALCIUM [Concomitant]
     Indication: ROUTINE HEALTH MAINTENANCE
     Dosage: UNK; ONCE DAILY
     Route: 048
     Dates: start: 19900101

REACTIONS (1)
  - DEATH [None]
